FAERS Safety Report 8462926-1 (Version None)
Quarter: 2012Q2

REPORT INFORMATION
  Report Type: 
  Country: None (occurrence: None)
  Receive Date: 20120625
  Receipt Date: 20120611
  Transmission Date: 20120825
  Serious: Yes (Other)
  Sender: FDA-Public Use
  Company Number: DE-ROCHE-1077881

PATIENT

DRUGS (2)
  1. XELODA [Suspect]
     Indication: RECTAL CANCER
     Dosage: TWO CYCLES
     Route: 048
  2. XELODA [Suspect]
     Route: 048

REACTIONS (10)
  - BLOOD BILIRUBIN INCREASED [None]
  - MUCOSAL INFLAMMATION [None]
  - RADIATION SKIN INJURY [None]
  - VOMITING [None]
  - PROCTITIS [None]
  - WHITE BLOOD CELL COUNT DECREASED [None]
  - PALMAR-PLANTAR ERYTHRODYSAESTHESIA SYNDROME [None]
  - DIARRHOEA [None]
  - ABDOMINAL PAIN [None]
  - NAUSEA [None]
